FAERS Safety Report 17052481 (Version 2)
Quarter: 2020Q4

REPORT INFORMATION
  Report Type: Spontaneous
  Country: JP (occurrence: JP)
  Receive Date: 20191120
  Receipt Date: 20201228
  Transmission Date: 20210113
  Serious: Yes (Other)
  Sender: FDA-Public Use
  Company Number: JP-PFIZER INC-2019494095

PATIENT
  Age: 8 Decade
  Sex: Male

DRUGS (1)
  1. SELARA [Suspect]
     Active Substance: EPLERENONE
     Dosage: 25 MG, UNK
     Route: 048

REACTIONS (2)
  - Blood potassium increased [Unknown]
  - Renal impairment [Unknown]
